FAERS Safety Report 12860016 (Version 1)
Quarter: 2016Q4

REPORT INFORMATION
  Report Type: Spontaneous
  Country: AU (occurrence: AU)
  Receive Date: 20161019
  Receipt Date: 20161019
  Transmission Date: 20170207
  Serious: Yes (Death, Hospitalization, Disabling, Other)
  Sender: FDA-Public Use
  Company Number: AU-GLAXOSMITHKLINE-AU2016GSK147203

PATIENT
  Age: 73 Year
  Sex: Female

DRUGS (1)
  1. VENTOLIN [Suspect]
     Active Substance: ALBUTEROL SULFATE
     Indication: PRODUCT USED FOR UNKNOWN INDICATION

REACTIONS (10)
  - General physical health deterioration [Unknown]
  - Myocardial infarction [Fatal]
  - Cerebrovascular accident [Unknown]
  - Cardiac disorder [Unknown]
  - Dizziness [Unknown]
  - Cerebral haemorrhage [Unknown]
  - Sleep apnoea syndrome [Unknown]
  - Musculoskeletal disorder [Unknown]
  - Weight increased [Unknown]
  - Vertigo [Unknown]

NARRATIVE: CASE EVENT DATE: 20160125
